FAERS Safety Report 11287460 (Version 3)
Quarter: 2015Q4

REPORT INFORMATION
  Report Type: Spontaneous
  Country: GB (occurrence: GB)
  Receive Date: 20150721
  Receipt Date: 20151105
  Transmission Date: 20160304
  Serious: Yes (Other)
  Sender: FDA-Public Use
  Company Number: GB-ROCHE-1610709

PATIENT
  Sex: Female

DRUGS (2)
  1. HERCEPTIN [Suspect]
     Active Substance: TRASTUZUMAB
     Indication: PRODUCT USED FOR UNKNOWN INDICATION
     Route: 058
     Dates: start: 20150810
  2. TAMOXIFEN [Concomitant]
     Active Substance: TAMOXIFEN

REACTIONS (8)
  - Fatigue [Unknown]
  - Vaginal haemorrhage [Unknown]
  - Oral candidiasis [Unknown]
  - Dry skin [Unknown]
  - Onychoclasis [Unknown]
  - Nocturia [Unknown]
  - Hypertension [Unknown]
  - Urinary tract infection [Unknown]
